FAERS Safety Report 13488801 (Version 1)
Quarter: 2017Q2

REPORT INFORMATION
  Report Type: Spontaneous
  Country: JP (occurrence: JP)
  Receive Date: 20170427
  Receipt Date: 20170427
  Transmission Date: 20170830
  Serious: Yes (Hospitalization)
  Sender: FDA-Public Use
  Company Number: JP-APOTEX-2017AP010984

PATIENT

DRUGS (2)
  1. SILECE [Concomitant]
     Active Substance: FLUNITRAZEPAM
     Dosage: UNK
  2. PAXIL CR [Suspect]
     Active Substance: PAROXETINE HYDROCHLORIDE
     Indication: PRODUCT USED FOR UNKNOWN INDICATION
     Dosage: 12.5 MG, UNK
     Route: 048

REACTIONS (4)
  - Tooth deposit [Unknown]
  - Oral pigmentation [Unknown]
  - Wrong technique in product usage process [Unknown]
  - Adverse reaction [Unknown]
